FAERS Safety Report 7379716-3 (Version None)
Quarter: 2011Q1

REPORT INFORMATION
  Report Type: 
  Country: None (occurrence: None)
  Receive Date: 20110318
  Receipt Date: 20110315
  Transmission Date: 20110831
  Serious: Yes (Hospitalization)
  Sender: FDA-Public Use
  Company Number: 8040614

PATIENT
  Sex: Female
  Weight: 79.5 kg

DRUGS (6)
  1. METHOTREXATE [Concomitant]
  2. LEXAPRO [Concomitant]
  3. LISINOPRIL [Concomitant]
  4. CERTOLIZUMAB PEGOL [Suspect]
     Dosage: 200 MG 1X2 WEEKS, SUBCUTANEOUS
     Route: 058
     Dates: start: 20080604
  5. FOLIC ACID [Concomitant]
  6. PREAVACID [Concomitant]

REACTIONS (3)
  - ORAL CANDIDIASIS [None]
  - HERPES PHARYNGITIS [None]
  - VOMITING [None]
